FAERS Safety Report 11912054 (Version 2)
Quarter: 2016Q3

REPORT INFORMATION
  Report Type: Report from Study
  Country: IT (occurrence: IT)
  Receive Date: 20160112
  Receipt Date: 20160701
  Transmission Date: 20161109
  Serious: Yes (Other)
  Sender: FDA-Public Use
  Company Number: PHHY2011IT123269

PATIENT
  Age: 65 Year
  Sex: Female

DRUGS (21)
  1. SOM230 [Suspect]
     Active Substance: PASIREOTIDE
     Dosage: 300 UG, BID
     Route: 058
     Dates: start: 20110411
  2. METFORMIN [Concomitant]
     Active Substance: METFORMIN HYDROCHLORIDE
     Indication: DIABETES MELLITUS
     Dosage: UNK
     Route: 065
     Dates: start: 20101206
  3. SOM230 [Suspect]
     Active Substance: PASIREOTIDE
     Dosage: 300 UG, BID
     Route: 058
     Dates: start: 201307
  4. NIFEDIPINE. [Concomitant]
     Active Substance: NIFEDIPINE
     Indication: HYPERTENSION
     Dosage: 20 MG, UNK
     Route: 065
     Dates: start: 1990
  5. LANTUS [Concomitant]
     Active Substance: INSULIN GLARGINE
     Indication: DIABETES MELLITUS
     Route: 065
     Dates: start: 20111010
  6. VILDAGLIPTIN [Concomitant]
     Active Substance: VILDAGLIPTIN
     Indication: PRODUCT USED FOR UNKNOWN INDICATION
     Dosage: 50 MG, BID
     Route: 065
     Dates: start: 20130128
  7. VITAMIN D [Concomitant]
     Active Substance: CHOLECALCIFEROL
     Indication: PRODUCT USED FOR UNKNOWN INDICATION
     Dosage: UNK
     Route: 065
  8. COAPROVEL [Concomitant]
     Active Substance: HYDROCHLOROTHIAZIDE\IRBESARTAN
     Indication: PRODUCT USED FOR UNKNOWN INDICATION
     Dosage: 300/25 MG
     Route: 065
     Dates: start: 201206
  9. LOBIVON [Concomitant]
     Active Substance: NEBIVOLOL HYDROCHLORIDE
     Indication: PRODUCT USED FOR UNKNOWN INDICATION
     Dosage: 5 MG, UNK
     Route: 065
     Dates: start: 200601
  10. JANUVIA [Concomitant]
     Active Substance: SITAGLIPTIN PHOSPHATE
     Indication: DIABETES MELLITUS
     Route: 065
     Dates: start: 20110617
  11. DIBOSE [Concomitant]
     Indication: VITAMIN D DEFICIENCY
  12. SOM230 [Suspect]
     Active Substance: PASIREOTIDE
     Dosage: 300 UG, BID
     Route: 058
     Dates: start: 20110406, end: 20110410
  13. NATCAL D3 [Concomitant]
     Indication: PRODUCT USED FOR UNKNOWN INDICATION
     Dosage: 2 DF, UNK
     Route: 065
     Dates: start: 201103
  14. SOM230 [Suspect]
     Active Substance: PASIREOTIDE
     Dosage: 600 UG, BID
     Route: 058
     Dates: start: 20121222, end: 20130304
  15. EUTIROX [Concomitant]
     Active Substance: LEVOTHYROXINE SODIUM
     Indication: HYPOTHYROIDISM
     Route: 065
     Dates: start: 1989
  16. SOM230 [Suspect]
     Active Substance: PASIREOTIDE
     Indication: PITUITARY-DEPENDENT CUSHING^S SYNDROME
     Dosage: 600 UG, BID
     Route: 058
     Dates: start: 20101126, end: 20101209
  17. METFORMIN [Concomitant]
     Active Substance: METFORMIN HYDROCHLORIDE
     Dosage: 1000 MG, BID
     Route: 065
     Dates: start: 20121220, end: 20130128
  18. METFORMIN [Concomitant]
     Active Substance: METFORMIN HYDROCHLORIDE
     Dosage: 1000 MG, BID
     Route: 065
     Dates: start: 20130225
  19. ENAPREN [Concomitant]
     Active Substance: ENALAPRIL MALEATE
     Indication: HYPERTENSION
     Route: 065
     Dates: start: 1990
  20. DIBOSE [Concomitant]
     Indication: OSTEOPOROSIS
     Route: 065
     Dates: start: 20110413
  21. CANRENOATO DE POTASIO [Concomitant]
     Indication: PRODUCT USED FOR UNKNOWN INDICATION
     Dosage: 50 MG, UNK
     Route: 065
     Dates: start: 201205

REACTIONS (4)
  - Hyperglycaemia [Not Recovered/Not Resolved]
  - Adrenal insufficiency [Recovered/Resolved]
  - Liver function test increased [Recovered/Resolved]
  - Diabetes mellitus [Not Recovered/Not Resolved]

NARRATIVE: CASE EVENT DATE: 20111203
